FAERS Safety Report 4335484-0 (Version None)
Quarter: 2004Q2

REPORT INFORMATION
  Report Type: 
  Country: None (occurrence: None)
  Receive Date: 20040406
  Receipt Date: 20040322
  Transmission Date: 20050107
  Serious: Yes (Hospitalization)
  Sender: FDA-Public Use
  Company Number: 194686

PATIENT
  Sex: Female

DRUGS (2)
  1. AVONEX [Suspect]
     Indication: MULTIPLE SCLEROSIS
  2. AVONEX [Suspect]
     Indication: MULTIPLE SCLEROSIS

REACTIONS (6)
  - FATIGUE [None]
  - HALLUCINATION [None]
  - LETHARGY [None]
  - MOBILITY DECREASED [None]
  - PYREXIA [None]
  - URINARY TRACT INFECTION [None]
